FAERS Safety Report 19794598 (Version 3)
Quarter: 2021Q3

REPORT INFORMATION
  Report Type: Spontaneous
  Country: CN (occurrence: CN)
  Receive Date: 20210906
  Receipt Date: 20210915
  Transmission Date: 20211014
  Serious: Yes (Death)
  Sender: FDA-Public Use
  Company Number: CN-ASTRAZENECA-2021A712086

PATIENT
  Age: 23658 Day
  Sex: Female
  Weight: 58 kg

DRUGS (1)
  1. IMFINZI [Suspect]
     Active Substance: DURVALUMAB
     Indication: NON-SMALL CELL LUNG CANCER
     Dosage: 1500.0MG UNKNOWN
     Route: 042
     Dates: start: 20201109, end: 20201210

REACTIONS (5)
  - Malaise [Unknown]
  - Decreased appetite [Unknown]
  - Feeding disorder [Unknown]
  - Asthenia [Unknown]
  - Death [Fatal]

NARRATIVE: CASE EVENT DATE: 20210601
